FAERS Safety Report 17884125 (Version 1)
Quarter: 2020Q2

REPORT INFORMATION
  Report Type: Spontaneous
  Country: US (occurrence: US)
  Receive Date: 20200610
  Receipt Date: 20200610
  Transmission Date: 20200714
  Serious: Yes (Other)
  Sender: FDA-Public Use
  Company Number: None

PATIENT
  Age: 60 Year
  Sex: Female
  Weight: 65.25 kg

DRUGS (7)
  1. NATURE-THROID [Concomitant]
     Active Substance: THYROID, PORCINE
  2. METHYLFOLATE [Concomitant]
     Active Substance: LEVOMEFOLATE CALCIUM
  3. NP THYROID [Suspect]
     Active Substance: LEVOTHYROXINE\LIOTHYRONINE
     Indication: AUTOIMMUNE THYROIDITIS
     Dosage: ?          QUANTITY:1 TABLET(S);?
     Route: 048
     Dates: start: 20200118, end: 20200305
  4. D3/K2 [Concomitant]
  5. MAGNESIUM [Concomitant]
     Active Substance: MAGNESIUM
  6. VITAMIN C [Concomitant]
     Active Substance: ASCORBIC ACID
  7. HYDROXOCOBALAMIN [Concomitant]
     Active Substance: HYDROXOCOBALAMIN

REACTIONS (14)
  - Aggression [None]
  - Insomnia [None]
  - Dysstasia [None]
  - Panic reaction [None]
  - Product substitution issue [None]
  - Anger [None]
  - Fatigue [None]
  - Palpitations [None]
  - Product odour abnormal [None]
  - Hyperarousal [None]
  - Panic attack [None]
  - Muscular weakness [None]
  - Initial insomnia [None]
  - Abnormal behaviour [None]

NARRATIVE: CASE EVENT DATE: 20200118
